FAERS Safety Report 20798777 (Version 2)
Quarter: 2022Q2

REPORT INFORMATION
  Report Type: Spontaneous
  Country: US (occurrence: US)
  Receive Date: 20220507
  Receipt Date: 20220517
  Transmission Date: 20220721
  Serious: Yes (Hospitalization, Other)
  Sender: FDA-Public Use
  Company Number: US-BION-010737

PATIENT
  Age: 34 Year
  Sex: Female

DRUGS (11)
  1. VALPROIC ACID [Suspect]
     Active Substance: VALPROIC ACID
     Indication: Seizure prophylaxis
     Dosage: 1000MG/DAY
  2. CLOZAPINE [Suspect]
     Active Substance: CLOZAPINE
     Indication: Schizoaffective disorder
     Dosage: 50, 75, 100, 150  MG/DAY
  3. ZIPRASIDONE HYDROCHLORIDE [Concomitant]
     Active Substance: ZIPRASIDONE HYDROCHLORIDE
     Indication: Schizoaffective disorder
     Dosage: 120, 80, 60, 40 MG/DAY
  4. OLANZAPINE [Concomitant]
     Active Substance: OLANZAPINE
     Dosage: ALSO 10 MG/DAY
  5. MELATONIN [Concomitant]
     Active Substance: MELATONIN
  6. OMEPRAZOLE [Concomitant]
     Active Substance: OMEPRAZOLE
  7. IBUPROFEN [Concomitant]
     Active Substance: IBUPROFEN
     Indication: Pain
  8. ONDANSETRON [Concomitant]
     Active Substance: ONDANSETRON
     Indication: Nausea
  9. CEFTRIAXONE [Concomitant]
     Active Substance: CEFTRIAXONE
     Indication: Urinary tract infection
     Route: 042
  10. ENOXAPARIN [Concomitant]
     Active Substance: ENOXAPARIN
     Route: 058
  11. RISPERIDONE [Concomitant]
     Active Substance: RISPERIDONE

REACTIONS (3)
  - Myocarditis [Recovering/Resolving]
  - Atrioventricular block first degree [Unknown]
  - Urinary tract infection [Unknown]
